FAERS Safety Report 4424326-0 (Version None)
Quarter: 2004Q3

REPORT INFORMATION
  Report Type: 
  Country: None (occurrence: None)
  Receive Date: 20040809
  Receipt Date: 20040722
  Transmission Date: 20050211
  Serious: Yes (Death, Hospitalization)
  Sender: FDA-Public Use
  Company Number: DSA_23861_2004

PATIENT
  Age: 90 Year
  Sex: Female

DRUGS (6)
  1. ENALAPRIL MALEATE [Suspect]
     Dosage: 20 MG QD PO
     Route: 048
  2. FLUOXETINE [Suspect]
     Dosage: 20 MG QD PO
     Route: 048
  3. ASPIRIN [Suspect]
     Dosage: 75 MG QD PO
  4. MELOXICAM [Suspect]
     Dosage: 30 MG QD PO
     Dates: end: 20040105
  5. PREDNISOLONE [Suspect]
     Dosage: 2.5 UNK Q DAY PO
  6. BURINEX A [Suspect]
     Dosage: 1 TAB QD PO

REACTIONS (1)
  - MELAENA [None]
